FAERS Safety Report 17363966 (Version 6)
Quarter: 2020Q2

REPORT INFORMATION
  Report Type: Spontaneous
  Country: ES (occurrence: ES)
  Receive Date: 20200203
  Receipt Date: 20200415
  Transmission Date: 20200713
  Serious: Yes (Hospitalization, Other)
  Sender: FDA-Public Use
  Company Number: ES-ALLERGAN-2004472US

PATIENT
  Sex: Female

DRUGS (2)
  1. ESCITALOPRAM OXALATE - BP [Suspect]
     Active Substance: ESCITALOPRAM OXALATE
     Indication: AFFECTIVE DISORDER
     Route: 065
  2. AMITRIPTYLINE [Suspect]
     Active Substance: AMITRIPTYLINE
     Indication: AFFECTIVE DISORDER
     Route: 065

REACTIONS (2)
  - Colitis microscopic [Recovered/Resolved]
  - Product use in unapproved indication [Unknown]
